FAERS Safety Report 6274912-0 (Version None)
Quarter: 2009Q3

REPORT INFORMATION
  Report Type: 
  Country: None (occurrence: None)
  Receive Date: 20090721
  Receipt Date: 20090714
  Transmission Date: 20100115
  Serious: Yes (Other)
  Sender: FDA-Public Use
  Company Number: US-JNJFOC-20090705993

PATIENT
  Sex: Female
  Weight: 68.04 kg

DRUGS (3)
  1. DURAGESIC-100 [Suspect]
     Indication: PAIN IN EXTREMITY
     Route: 062
  2. XANAX [Concomitant]
     Indication: ANXIETY
     Route: 048
  3. KLONOPIN [Concomitant]
     Indication: ANXIETY
     Route: 048

REACTIONS (3)
  - APPLICATION SITE ERYTHEMA [None]
  - CONVULSION [None]
  - INAPPROPRIATE SCHEDULE OF DRUG ADMINISTRATION [None]
